FAERS Safety Report 5914834-5 (Version None)
Quarter: 2008Q4

REPORT INFORMATION
  Report Type: 
  Country: None (occurrence: None)
  Receive Date: 20081008
  Receipt Date: 20081002
  Transmission Date: 20090506
  Serious: Yes (Hospitalization)
  Sender: FDA-Public Use
  Company Number: 2008S1009821

PATIENT
  Age: 49 Year
  Sex: Male

DRUGS (1)
  1. FLEET ENEMA EXTRA [Suspect]
     Dosage: 230 ML; X1; RTL
     Route: 054
     Dates: start: 20081002, end: 20081002

REACTIONS (2)
  - DRUG INEFFECTIVE [None]
  - ONCOLOGIC COMPLICATION [None]
